FAERS Safety Report 15491429 (Version 1)
Quarter: 2018Q4

REPORT INFORMATION
  Report Type: Spontaneous
  Country: US (occurrence: US)
  Receive Date: 20181012
  Receipt Date: 20181012
  Transmission Date: 20190205
  Serious: Yes (Death)
  Sender: FDA-Public Use
  Company Number: US-ROCHE-2197289

PATIENT

DRUGS (1)
  1. AVASTIN [Suspect]
     Active Substance: BEVACIZUMAB
     Indication: PRODUCT USED FOR UNKNOWN INDICATION
     Dosage: ON 29/NOV/2017, DOSE RECEIVED (600 MG)- 3 VIALS, ON 20/DEC/2017, DOSE RECEIVED (600 MG)- 3 VIALS, ON
     Route: 065
     Dates: start: 20171129, end: 20180117

REACTIONS (1)
  - Death [Fatal]
